FAERS Safety Report 8173317-5 (Version None)
Quarter: 2012Q1

REPORT INFORMATION
  Report Type: 
  Country: None (occurrence: None)
  Receive Date: 20120229
  Receipt Date: 20120227
  Transmission Date: 20120608
  Serious: No
  Sender: FDA-Public Use
  Company Number: US-PFIZER INC-2012051605

PATIENT
  Sex: Female
  Weight: 61.224 kg

DRUGS (1)
  1. PREMARIN [Suspect]
     Indication: VULVOVAGINAL DRYNESS
     Dosage: UNK, AS NEEDED
     Route: 067
     Dates: start: 20120201, end: 20120202

REACTIONS (2)
  - DYSPNOEA [None]
  - HEADACHE [None]
